FAERS Safety Report 8811918 (Version 3)
Quarter: 2012Q4

REPORT INFORMATION
  Report Type: 
  Country: JP (occurrence: JP)
  Receive Date: 20120927
  Receipt Date: 20121023
  Transmission Date: 20130627
  Serious: Yes (Life-Threatening, Hospitalization, Other)
  Sender: FDA-Public Use
  Company Number: JP-PFIZER INC-2012238330

PATIENT
  Age: 80 Year
  Sex: Female
  Weight: 43.8 kg

DRUGS (9)
  1. LYRICA [Suspect]
     Indication: PAIN IN EXTREMITY
     Dosage: 150 mg/day
     Route: 048
     Dates: start: 201108, end: 20111003
  2. LYRICA [Suspect]
     Dosage: 150 mg in morning and 75 mg in evening
     Route: 048
     Dates: start: 20111004, end: 20111008
  3. VALTREX [Suspect]
     Indication: HERPES ZOSTER
     Dosage: 1000 mg, 3x/day
     Route: 048
     Dates: start: 20111004, end: 20111008
  4. LOXONIN [Suspect]
     Indication: PAIN IN EXTREMITY
     Dosage: 60 mg, 2x/day
     Route: 048
     Dates: end: 20111008
  5. VOLTAREN [Suspect]
     Indication: PAIN IN EXTREMITY
     Dosage: 50 mg, 1 to 3 times daily
     Route: 054
     Dates: end: 20111008
  6. THYRADIN [Concomitant]
     Indication: HYPOTHYROIDISM
     Dosage: 50 mg, 1x/day
     Route: 048
  7. CRESTOR [Concomitant]
     Indication: HYPERLIPIDAEMIA
     Dosage: 2.5 mg, 1x/day
     Route: 048
     Dates: end: 20111008
  8. MUCOSTA [Concomitant]
     Indication: GASTRITIS
     Dosage: 100 mg, 3x/day
     Route: 048
  9. LANSOPRAZOLE [Concomitant]
     Indication: GASTRITIS
     Dosage: 15 mg, 1x/day
     Route: 048
     Dates: end: 20111008

REACTIONS (6)
  - Blood potassium increased [Recovered/Resolved]
  - Blood creatinine increased [Recovered/Resolved]
  - Blood urea increased [Recovered/Resolved]
  - Renal failure acute [Recovered/Resolved]
  - Urinary retention [Unknown]
  - Dysuria [Unknown]
